FAERS Safety Report 18036763 (Version 1)
Quarter: 2020Q3

REPORT INFORMATION
  Report Type: Spontaneous
  Country: AU (occurrence: AU)
  Receive Date: 20200717
  Receipt Date: 20200717
  Transmission Date: 20201103
  Serious: Yes (Hospitalization, Other)
  Sender: FDA-Public Use
  Company Number: AU-ASTELLAS-2020US024024

PATIENT
  Age: 18 Year
  Sex: Female

DRUGS (2)
  1. RITUXIMAB. [Concomitant]
     Active Substance: RITUXIMAB
     Indication: LUPUS NEPHRITIS
     Dosage: UNK UNK, UNKNOWN FREQ.
     Route: 065
  2. TACROLIMUS. [Suspect]
     Active Substance: TACROLIMUS
     Indication: LUPUS NEPHRITIS
     Dosage: UNK UNK, UNKNOWN FREQ.
     Route: 065

REACTIONS (6)
  - Meningitis cryptococcal [Recovered/Resolved]
  - Stenotrophomonas infection [Recovered/Resolved]
  - Bacterial disease carrier [Recovered/Resolved]
  - Atrial thrombosis [Recovered/Resolved]
  - Device related bacteraemia [Recovered/Resolved]
  - Staphylococcal infection [Recovered/Resolved]
